FAERS Safety Report 7201957-6 (Version None)
Quarter: 2010Q4

REPORT INFORMATION
  Report Type: 
  Country: None (occurrence: None)
  Receive Date: 20101215
  Receipt Date: 20101209
  Transmission Date: 20110411
  Serious: Yes (Hospitalization, Other)
  Sender: FDA-Public Use
  Company Number: 20108516

PATIENT
  Sex: Male

DRUGS (1)
  1. LIORESAL [Suspect]
     Indication: MUSCLE SPASTICITY
     Dosage: 155.4 MCG, DAILY, INTRATHECAL
     Route: 037

REACTIONS (19)
  - DEEP VEIN THROMBOSIS [None]
  - DEVICE BREAKAGE [None]
  - DEVICE MALFUNCTION [None]
  - DISEASE RECURRENCE [None]
  - HAEMOGLOBIN DECREASED [None]
  - HEADACHE [None]
  - IMPAIRED HEALING [None]
  - INCORRECT DOSE ADMINISTERED [None]
  - MALAISE [None]
  - MUSCLE SPASTICITY [None]
  - MUSCLE TIGHTNESS [None]
  - PAIN [None]
  - POST PROCEDURAL HAEMORRHAGE [None]
  - PULMONARY EMBOLISM [None]
  - URINARY TRACT INFECTION [None]
  - WHITE BLOOD CELL COUNT DECREASED [None]
  - WOUND DEHISCENCE [None]
  - WOUND HAEMORRHAGE [None]
  - WOUND INFECTION [None]
